FAERS Safety Report 9551923 (Version 1)
Quarter: 2013Q3

REPORT INFORMATION
  Report Type: Spontaneous
  Country: CA (occurrence: CA)
  Receive Date: 20130925
  Receipt Date: 20130925
  Transmission Date: 20140515
  Serious: Yes (Death)
  Sender: FDA-Public Use
  Company Number: CA-JNJFOC-20130913183

PATIENT
  Age: 37 Year
  Sex: Male
  Weight: 115 kg

DRUGS (3)
  1. RISPERIDONE [Suspect]
     Indication: PRODUCT USED FOR UNKNOWN INDICATION
     Route: 065
  2. LITHIUM CARBONATE [Suspect]
     Indication: PRODUCT USED FOR UNKNOWN INDICATION
     Route: 065
  3. TOPIRAMATE [Concomitant]
     Route: 065

REACTIONS (6)
  - Death [Fatal]
  - Circulatory collapse [Unknown]
  - Heat stroke [Unknown]
  - Fatigue [Unknown]
  - Insomnia [Unknown]
  - Irritability [Unknown]
